FAERS Safety Report 5068886-8 (Version None)
Quarter: 2006Q3

REPORT INFORMATION
  Report Type: 
  Country: None (occurrence: None)
  Receive Date: 20060802
  Receipt Date: 20060519
  Transmission Date: 20061208
  Serious: No
  Sender: FDA-Public Use
  Company Number: US-BRISTOL-MYERS SQUIBB COMPANY-13382817

PATIENT
  Age: 87 Year
  Sex: Male
  Weight: 71 kg

DRUGS (4)
  1. COUMADIN [Suspect]
     Indication: ATRIAL FIBRILLATION
     Dosage: 5MG/D SINCE 3/17, DOSE INCREASED TO 7.5MG/D ON 5/8, THEN DECR. TO 6MG/D ON 5/15, CURRENTLY ON HOLD
     Route: 048
     Dates: start: 20060317
  2. ARICEPT [Concomitant]
     Dosage: DURATION: 1 YEAR
  3. LOPRESSOR [Concomitant]
  4. NAMENDA [Concomitant]

REACTIONS (3)
  - DIARRHOEA [None]
  - INTERNATIONAL NORMALISED RATIO FLUCTUATION [None]
  - VOMITING [None]
